FAERS Safety Report 24751039 (Version 1)
Quarter: 2024Q4

REPORT INFORMATION
  Report Type: Spontaneous
  Country: CN (occurrence: CN)
  Receive Date: 20241219
  Receipt Date: 20241219
  Transmission Date: 20250115
  Serious: Yes (Other)
  Sender: SANOFI AVENTIS
  Company Number: CN-ASTELLAS-2024-AER-025165

PATIENT

DRUGS (1)
  1. HARNAL [Suspect]
     Active Substance: TAMSULOSIN HYDROCHLORIDE
     Indication: Product used for unknown indication
     Dosage: 0.2 MG, QD
     Route: 065
     Dates: start: 20241211

REACTIONS (3)
  - Depressed level of consciousness [Unknown]
  - Coma [Unknown]
  - Listless [Unknown]

NARRATIVE: CASE EVENT DATE: 20241211
